FAERS Safety Report 6557746-9 (Version None)
Quarter: 2010Q1

REPORT INFORMATION
  Report Type: 
  Country: None (occurrence: None)
  Receive Date: 20100129
  Receipt Date: 20100120
  Transmission Date: 20100710
  Serious: Yes (Hospitalization)
  Sender: FDA-Public Use
  Company Number: FR-ASTRAZENECA-2010SE03025

PATIENT
  Age: 8514 Day
  Sex: Female

DRUGS (14)
  1. PULMICORT [Suspect]
     Indication: ASTHMA
     Route: 055
     Dates: start: 20091106, end: 20091107
  2. OMEPRAZOLE [Suspect]
     Indication: GASTROOESOPHAGEAL REFLUX DISEASE
     Route: 048
     Dates: start: 20091106, end: 20091107
  3. TAMIFLU [Suspect]
     Indication: INFLUENZA
     Route: 048
     Dates: start: 20091106, end: 20091110
  4. SPIFEN [Suspect]
     Indication: PAIN
     Route: 048
     Dates: start: 20091106, end: 20091107
  5. AMOXICILLIN [Suspect]
     Indication: BACTERIAL INFECTION
     Route: 048
     Dates: start: 20091106, end: 20091107
  6. EXOMUC [Suspect]
     Indication: COUGH
     Route: 048
     Dates: start: 20091106, end: 20091107
  7. BIPERIDYS [Suspect]
     Indication: VOMITING
     Route: 048
     Dates: start: 20091106, end: 20091107
  8. VENTOLIN [Suspect]
     Indication: ASTHMA
     Route: 048
     Dates: start: 20091106, end: 20091107
  9. CLAFORAN [Suspect]
     Indication: INFECTION
     Route: 042
     Dates: start: 20091107, end: 20091107
  10. ZOVIRAX [Suspect]
     Indication: INFECTION
     Route: 042
     Dates: start: 20091107, end: 20091107
  11. PARACETAMOL [Concomitant]
     Indication: PAIN
     Route: 048
  12. BRICANYL [Concomitant]
     Indication: ASTHMA
     Route: 055
  13. ATROVENT [Concomitant]
     Indication: ASTHMA
     Route: 055
  14. LOVENOX [Concomitant]
     Indication: THROMBOSIS
     Route: 058

REACTIONS (1)
  - HEPATOCELLULAR INJURY [None]
